FAERS Safety Report 5411598-9 (Version None)
Quarter: 2007Q3

REPORT INFORMATION
  Report Type: 
  Country: None (occurrence: None)
  Receive Date: 20070810
  Receipt Date: 20070419
  Transmission Date: 20080115
  Serious: Yes (Hospitalization, Other)
  Sender: FDA-Public Use
  Company Number: US-PFIZER INC-2007057319

PATIENT
  Sex: Male
  Weight: 79.4 kg

DRUGS (3)
  1. CELEBREX [Suspect]
     Indication: CARPAL TUNNEL SYNDROME
     Route: 048
  2. CELEBREX [Suspect]
     Indication: PAIN MANAGEMENT
  3. CELEBREX [Suspect]
     Indication: ARTHRITIS

REACTIONS (5)
  - COAGULOPATHY [None]
  - DEPRESSION [None]
  - INSOMNIA [None]
  - MYOCARDIAL INFARCTION [None]
  - PANIC ATTACK [None]
